FAERS Safety Report 24455242 (Version 2)
Quarter: 2024Q4

REPORT INFORMATION
  Report Type: Spontaneous
  Country: PH (occurrence: PH)
  Receive Date: 20241017
  Receipt Date: 20241018
  Transmission Date: 20250115
  Serious: No
  Sender: ROCHE
  Company Number: PH-ROCHE-3484283

PATIENT
  Age: 57 Year
  Sex: Female

DRUGS (3)
  1. RITUXIMAB [Suspect]
     Active Substance: RITUXIMAB
     Indication: Exophthalmos
     Route: 042
  2. RITUXIMAB [Suspect]
     Active Substance: RITUXIMAB
     Indication: Myxoedema
  3. RITUXIMAB [Suspect]
     Active Substance: RITUXIMAB
     Indication: Osteoarthropathy

REACTIONS (2)
  - Off label use [Unknown]
  - No adverse event [Unknown]
